FAERS Safety Report 10239049 (Version 1)
Quarter: 2014Q2

REPORT INFORMATION
  Report Type: Spontaneous
  Country: GB (occurrence: GB)
  Receive Date: 20140616
  Receipt Date: 20140616
  Transmission Date: 20141212
  Serious: Yes (Other)
  Sender: FDA-Public Use
  Company Number: GB-PFIZER INC-2014158430

PATIENT
  Age: 69 Year
  Sex: Female
  Weight: 81 kg

DRUGS (4)
  1. LIPITOR [Suspect]
     Indication: FAMILIAL RISK FACTOR
     Dosage: 20 MG, UNK
     Route: 048
     Dates: start: 20130718, end: 20140102
  2. LANSOPRAZOLE [Concomitant]
     Dosage: UNK
  3. CLOPIDOGREL [Concomitant]
     Dosage: UNK
  4. PARACETAMOL [Concomitant]
     Dosage: UNK

REACTIONS (11)
  - Musculoskeletal stiffness [Recovered/Resolved with Sequelae]
  - Vascular occlusion [Recovered/Resolved]
  - Pollakiuria [Recovered/Resolved with Sequelae]
  - Pelvic floor muscle weakness [Recovered/Resolved with Sequelae]
  - Urinary incontinence [Recovered/Resolved with Sequelae]
  - Blood urine present [Recovered/Resolved with Sequelae]
  - Fatigue [Recovered/Resolved with Sequelae]
  - Blood pressure fluctuation [Recovered/Resolved with Sequelae]
  - Hypersomnia [Recovered/Resolved]
  - Pain [Recovered/Resolved]
  - Vision blurred [Recovered/Resolved]
